FAERS Safety Report 12758193 (Version 2)
Quarter: 2016Q3

REPORT INFORMATION
  Report Type: Spontaneous
  Country: JP (occurrence: JP)
  Receive Date: 20160919
  Receipt Date: 20160928
  Transmission Date: 20161109
  Serious: Yes (Hospitalization)
  Sender: FDA-Public Use
  Company Number: JP-BAYER-2016-180107

PATIENT
  Age: 77 Year
  Sex: Male

DRUGS (3)
  1. PREDNISOLONE. [Concomitant]
     Active Substance: PREDNISOLONE
     Indication: MUSCULOSKELETAL PAIN
     Dosage: 30 MG, QD
     Route: 048
     Dates: start: 201404
  2. ACETYLSALICYLIC ACID({=100 MG) [Suspect]
     Active Substance: ASPIRIN
     Indication: THROMBOSIS PROPHYLAXIS
     Dosage: UNK
     Route: 048
  3. SAW PALMETTO [Suspect]
     Active Substance: SAW PALMETTO
     Indication: POLLAKIURIA
     Dosage: UNK
     Dates: end: 201406

REACTIONS (3)
  - Pancreatic enzymes increased [Recovered/Resolved]
  - Pollakiuria [None]
  - Hepatic enzyme increased [Recovered/Resolved]

NARRATIVE: CASE EVENT DATE: 20140605
